FAERS Safety Report 5470485-0 (Version None)
Quarter: 2007Q3

REPORT INFORMATION
  Report Type: 
  Country: None (occurrence: None)
  Receive Date: 20070820
  Receipt Date: 20070608
  Transmission Date: 20080115
  Serious: No
  Sender: FDA-Public Use
  Company Number: WAES 0706USA02456

PATIENT

DRUGS (1)
  1. JANUVIA [Suspect]

REACTIONS (1)
  - SKIN LESION [None]
